FAERS Safety Report 16430726 (Version 1)
Quarter: 2019Q2

REPORT INFORMATION
  Report Type: Report from Study
  Country: CA (occurrence: CA)
  Receive Date: 20190614
  Receipt Date: 20190614
  Transmission Date: 20190711
  Serious: Yes (Other)
  Sender: FDA-Public Use
  Company Number: PHHY2019CA053740

PATIENT
  Sex: Female

DRUGS (2)
  1. EXEMESTANE. [Concomitant]
     Active Substance: EXEMESTANE
     Indication: PRODUCT USED FOR UNKNOWN INDICATION
     Route: 065
  2. AFINITOR [Suspect]
     Active Substance: EVEROLIMUS
     Indication: BREAST CANCER
     Dosage: 10 MG, QD
     Route: 048
     Dates: start: 20190212

REACTIONS (15)
  - Pain in extremity [Unknown]
  - Malaise [Recovering/Resolving]
  - Skin haemorrhage [Unknown]
  - Oropharyngeal pain [Unknown]
  - Dysphonia [Unknown]
  - Arthralgia [Unknown]
  - Aphonia [Unknown]
  - Asthenia [Unknown]
  - Pruritus [Unknown]
  - Epistaxis [Unknown]
  - Rash [Unknown]
  - Metastases to bone [Unknown]
  - Bone pain [Unknown]
  - Dry mouth [Unknown]
  - Erythema [Unknown]
